FAERS Safety Report 14891495 (Version 2)
Quarter: 2018Q2

REPORT INFORMATION
  Report Type: Spontaneous
  Country: US (occurrence: US)
  Receive Date: 20180514
  Receipt Date: 20180613
  Transmission Date: 20180711
  Serious: Yes (Death, Hospitalization, Other)
  Sender: FDA-Public Use
  Company Number: US-SA-2018SA048869

PATIENT
  Age: 87 Year
  Sex: Male
  Weight: 98 kg

DRUGS (6)
  1. ISOSORBIDE DINITRATE. [Concomitant]
     Active Substance: ISOSORBIDE DINITRATE
     Dosage: 2.5 MG,BID
     Route: 065
     Dates: start: 20160210
  2. ELIQUIS [Concomitant]
     Active Substance: APIXABAN
     Dosage: 25 MG,BID
     Route: 065
     Dates: start: 20171201
  3. PRALUENT [Suspect]
     Active Substance: ALIROCUMAB
     Indication: HYPERLIPIDAEMIA
     Dosage: 75 MG,QOW
     Route: 058
     Dates: start: 20171011, end: 20180124
  4. UBIDECARENONE [Concomitant]
     Active Substance: UBIDECARENONE
     Dosage: 200 MG,QD
     Route: 065
     Dates: start: 20140703
  5. CYANOCOBALAMIN. [Concomitant]
     Active Substance: CYANOCOBALAMIN
     Dosage: 1 DF,QD
     Route: 065
     Dates: start: 20171011
  6. NORVASC [Concomitant]
     Active Substance: AMLODIPINE BESYLATE
     Dosage: 10 MG,QD
     Route: 065
     Dates: start: 20160210

REACTIONS (4)
  - Bladder transitional cell carcinoma [Unknown]
  - Metastases to lung [Unknown]
  - Death [Fatal]
  - Haematuria [Unknown]

NARRATIVE: CASE EVENT DATE: 20180124
